FAERS Safety Report 20381384 (Version 2)
Quarter: 2022Q1

REPORT INFORMATION
  Report Type: Other
  Country: US (occurrence: None)
  Receive Date: 20220127
  Receipt Date: 20220222
  Transmission Date: 20220423
  Serious: No
  Sender: FDA-Public Use
  Company Number: US-ROCHE-3009743

PATIENT
  Sex: Male

DRUGS (7)
  1. OCREVUS [Suspect]
     Active Substance: OCRELIZUMAB
     Indication: Relapsing multiple sclerosis
     Dosage: DATE OF TREATMENT: 22/FEB/2019, 15/MAR/2019, 17/OCT/2019, 06/JUL/2020, 18/JUN/2021
     Route: 042
  2. MODERNA COVID-19 VACCINE [Concomitant]
     Active Substance: ELASOMERAN
     Route: 030
     Dates: start: 20210304
  3. MODERNA COVID-19 VACCINE [Concomitant]
     Active Substance: ELASOMERAN
     Route: 030
     Dates: start: 20210105
  4. TADALAFIL [Concomitant]
     Active Substance: TADALAFIL
     Dosage: 1 TABLET BY MOUTH FOR ERECTILE DYSFUNCTION AS NEEDED
     Route: 048
     Dates: start: 20220207
  5. CYCLOBENZAPRINE [Concomitant]
     Active Substance: CYCLOBENZAPRINE
     Route: 048
     Dates: start: 20220128
  6. FOLIC ACID [Concomitant]
     Active Substance: FOLIC ACID
  7. AMITRIPTYLINE [Concomitant]
     Active Substance: AMITRIPTYLINE
     Dosage: 5TABLETS NIGHTLY
     Route: 048
     Dates: start: 20220124

REACTIONS (3)
  - COVID-19 [Unknown]
  - Sacroiliitis [Unknown]
  - Obesity [Unknown]
